FAERS Safety Report 9883708 (Version 1)
Quarter: 2014Q1

REPORT INFORMATION
  Report Type: Spontaneous
  Country: FR (occurrence: FR)
  Receive Date: 20140210
  Receipt Date: 20140210
  Transmission Date: 20141002
  Serious: Yes (Hospitalization)
  Sender: FDA-Public Use
  Company Number: FR-009507513-1402FRA001865

PATIENT
  Age: 61 Year
  Sex: Male

DRUGS (1)
  1. EZETROL [Suspect]
     Indication: HYPERCHOLESTEROLAEMIA
     Dosage: 10 MG, QD
     Route: 048
     Dates: start: 20131204, end: 20140117

REACTIONS (4)
  - Dermatitis exfoliative [Recovering/Resolving]
  - Palmoplantar keratoderma [Recovering/Resolving]
  - Skin exfoliation [Recovering/Resolving]
  - Conjunctival disorder [Recovering/Resolving]
